FAERS Safety Report 7290240-9 (Version None)
Quarter: 2011Q1

REPORT INFORMATION
  Report Type: 
  Country: None (occurrence: None)
  Receive Date: 20110214
  Receipt Date: 20110131
  Transmission Date: 20110831
  Serious: Yes (Hospitalization)
  Sender: FDA-Public Use
  Company Number: FR-CELGENEUS-056-21880-09101936

PATIENT
  Sex: Male

DRUGS (3)
  1. REVLIMID [Suspect]
     Indication: MULTIPLE MYELOMA
     Route: 048
     Dates: start: 20070301, end: 20090818
  2. PARACETAMOL [Concomitant]
     Route: 065
  3. CACIT D3 [Concomitant]
     Route: 065

REACTIONS (2)
  - HODGKIN'S DISEASE [None]
  - PYREXIA [None]
